FAERS Safety Report 5649478-6 (Version None)
Quarter: 2008Q1

REPORT INFORMATION
  Report Type: 
  Country: None (occurrence: None)
  Receive Date: 20080304
  Receipt Date: 20080225
  Transmission Date: 20080703
  Serious: Yes (Hospitalization)
  Sender: FDA-Public Use
  Company Number: FR-ASTRAZENECA-2008CG00313

PATIENT
  Age: 29086 Day
  Sex: Male

DRUGS (6)
  1. ATACAND [Suspect]
     Route: 048
     Dates: end: 20080116
  2. VANCOMYCINE ^MERCK^ [Suspect]
     Route: 042
     Dates: start: 20080114, end: 20080115
  3. PREVISCAN [Concomitant]
     Dates: end: 20080108
  4. SECTRAL [Concomitant]
  5. ISOSORBIDE DINITRATE [Concomitant]
  6. LOVENOX [Concomitant]
     Dates: start: 20080109

REACTIONS (3)
  - ANURIA [None]
  - HYPERKALAEMIA [None]
  - RENAL FAILURE ACUTE [None]
